FAERS Safety Report 6186990-8 (Version None)
Quarter: 2009Q2

REPORT INFORMATION
  Report Type: 
  Country: None (occurrence: None)
  Receive Date: 20090508
  Receipt Date: 20090421
  Transmission Date: 20091009
  Serious: Yes (Hospitalization)
  Sender: FDA-Public Use
  Company Number: ADE# 09-102DPR

PATIENT
  Age: 72 Year
  Sex: Female

DRUGS (6)
  1. DIGOXIN [Suspect]
     Indication: HEART RATE ABNORMAL
     Dosage: ONCE A DAY
     Dates: end: 20090331
  2. PLAVIX [Concomitant]
  3. DIOVAN HCT [Concomitant]
  4. ATENOLOL [Concomitant]
  5. ZOCOR [Concomitant]
  6. ASPIRIN [Concomitant]

REACTIONS (6)
  - BRAIN INJURY [None]
  - CEREBROVASCULAR ACCIDENT [None]
  - DIZZINESS POSTURAL [None]
  - FALL [None]
  - HAEMATOMA [None]
  - LACRIMATION INCREASED [None]
